FAERS Safety Report 17201144 (Version 3)
Quarter: 2021Q2

REPORT INFORMATION
  Report Type: Spontaneous
  Country: RU (occurrence: RU)
  Receive Date: 20191226
  Receipt Date: 20210423
  Transmission Date: 20210716
  Serious: Yes (Other)
  Sender: FDA-Public Use
  Company Number: RU-GLAXOSMITHKLINE-RU2019232024

PATIENT
  Age: 33 Year
  Sex: Female

DRUGS (5)
  1. FRAXIPARINE [Suspect]
     Active Substance: NADROPARIN CALCIUM
     Indication: PROPHYLAXIS
     Dosage: 0.3 ML, UNK
     Route: 058
     Dates: start: 20191205, end: 20191210
  2. KETOROLAC [Suspect]
     Active Substance: KETOROLAC TROMETHAMINE
     Indication: PAIN MANAGEMENT
     Dosage: 30 MG, 2 DOSE DAILY
     Route: 030
     Dates: start: 20191205, end: 20191208
  3. DICLOFENAC [Suspect]
     Active Substance: DICLOFENAC
     Indication: PAIN MANAGEMENT
     Dosage: 50 MG, 1 DOSE DAILY
     Route: 054
     Dates: start: 20191209, end: 20191211
  4. CEFOTAXIME [Concomitant]
     Active Substance: CEFOTAXIME SODIUM
     Indication: PRODUCT USED FOR UNKNOWN INDICATION
     Dosage: 1 G, BID
     Route: 030
     Dates: start: 20191209, end: 20191212
  5. SORBIFER [Concomitant]
     Indication: PRODUCT USED FOR UNKNOWN INDICATION
     Dosage: 100 MG, BID, PER OS
     Route: 048
     Dates: start: 20191209, end: 20191212

REACTIONS (1)
  - Post procedural haematoma [Recovered/Resolved]

NARRATIVE: CASE EVENT DATE: 20191209
